FAERS Safety Report 9281214 (Version 1)
Quarter: 2013Q2

REPORT INFORMATION
  Report Type: Spontaneous
  Country: US (occurrence: None)
  Receive Date: 20130502
  Receipt Date: 20130502
  Transmission Date: 20140414
  Serious: Yes (Hospitalization)
  Sender: FDA-Public Use
  Company Number: 2013AP004847

PATIENT
  Age: 4 Year
  Sex: Female

DRUGS (3)
  1. PREDNISOLONE [Suspect]
     Indication: IMMUNOSUPPRESSANT DRUG THERAPY
  2. TACROLIMUS [Concomitant]
  3. SIROLIMUS [Concomitant]

REACTIONS (5)
  - Tachycardia [None]
  - Hypertension [None]
  - Caecitis [None]
  - Pneumatosis intestinalis [None]
  - Intussusception [None]
